FAERS Safety Report 7713426-5 (Version None)
Quarter: 2011Q3

REPORT INFORMATION
  Report Type: 
  Country: None (occurrence: None)
  Receive Date: 20110826
  Receipt Date: 20110816
  Transmission Date: 20111222
  Serious: Yes (Hospitalization)
  Sender: FDA-Public Use
  Company Number: HK-JNJFOC-20110808443

PATIENT
  Age: 30 Year
  Sex: Female
  Weight: 43 kg

DRUGS (3)
  1. ALCOHOL [Suspect]
     Indication: ILL-DEFINED DISORDER
  2. ACETAMINOPHEN [Suspect]
     Indication: PRODUCT USED FOR UNKNOWN INDICATION
     Route: 065
  3. ACETAMINOPHEN [Suspect]
     Route: 065

REACTIONS (8)
  - VOMITING [None]
  - PYROGLUTAMATE INCREASED [None]
  - SUICIDE ATTEMPT [None]
  - METABOLIC ACIDOSIS [None]
  - INTENTIONAL OVERDOSE [None]
  - SPEECH DISORDER [None]
  - SOMNOLENCE [None]
  - ABDOMINAL PAIN UPPER [None]
